FAERS Safety Report 8162190-7 (Version None)
Quarter: 2012Q1

REPORT INFORMATION
  Report Type: 
  Country: None (occurrence: None)
  Receive Date: 20120224
  Receipt Date: 20111216
  Transmission Date: 20120608
  Serious: No
  Sender: FDA-Public Use
  Company Number: US-BRISTOL-MYERS SQUIBB COMPANY-16298945

PATIENT
  Age: 64 Year
  Sex: Female
  Weight: 99 kg

DRUGS (1)
  1. METFORMIN HCL [Suspect]

REACTIONS (2)
  - PROTEIN URINE PRESENT [None]
  - BLOOD GLUCOSE ABNORMAL [None]
